FAERS Safety Report 5353868-9 (Version None)
Quarter: 2007Q2

REPORT INFORMATION
  Report Type: 
  Country: None (occurrence: None)
  Receive Date: 20070521
  Receipt Date: 20070129
  Transmission Date: 20071010
  Serious: No
  Sender: FDA-Public Use
  Company Number: WAES 0701USA04891

PATIENT
  Age: 83 Year
  Sex: Male

DRUGS (10)
  1. JANUVIA [Suspect]
     Indication: DIABETES MELLITUS
     Dosage: 100 MG/DAILY/PO
     Route: 048
     Dates: start: 20061101
  2. AMBIEN [Concomitant]
  3. AVANDIA [Concomitant]
  4. AVODART [Concomitant]
  5. FLOMAX (MORNIFLUMATE) [Concomitant]
  6. PRAIDEN [Concomitant]
  7. PRECOSE [Concomitant]
  8. VYTORIN [Concomitant]
  9. ATENOLOL [Concomitant]
  10. GLYBURIDE [Concomitant]

REACTIONS (3)
  - CONSTIPATION [None]
  - EYE SWELLING [None]
  - EYELID OEDEMA [None]
